FAERS Safety Report 13449233 (Version 3)
Quarter: 2017Q2

REPORT INFORMATION
  Report Type: Spontaneous
  Country: IT (occurrence: IT)
  Receive Date: 20170417
  Receipt Date: 20170424
  Transmission Date: 20170830
  Serious: Yes (Hospitalization)
  Sender: FDA-Public Use
  Company Number: IT-PFIZER INC-2017153426

PATIENT
  Age: 58 Year
  Sex: Female

DRUGS (4)
  1. TRIATEC [Suspect]
     Active Substance: RAMIPRIL
     Indication: SUICIDAL IDEATION
     Dosage: 5 MG, TOTAL (1 DAY)
     Route: 048
     Dates: start: 20170217, end: 20170217
  2. ZOLPIDEM [Suspect]
     Active Substance: ZOLPIDEM\ZOLPIDEM TARTRATE
     Indication: SUICIDAL IDEATION
     Dosage: 90 MG, TOTAL (1 DAY)
     Route: 048
     Dates: start: 20170217, end: 20170217
  3. TRIATEC [Suspect]
     Active Substance: RAMIPRIL
     Indication: INTENTIONAL SELF-INJURY
  4. ZOLPIDEM [Suspect]
     Active Substance: ZOLPIDEM\ZOLPIDEM TARTRATE
     Indication: INTENTIONAL SELF-INJURY

REACTIONS (5)
  - Sopor [Unknown]
  - Drug use disorder [Unknown]
  - Suicidal ideation [Unknown]
  - Intentional overdose [Unknown]
  - Intentional self-injury [Unknown]

NARRATIVE: CASE EVENT DATE: 20170217
